FAERS Safety Report 8370721-7 (Version None)
Quarter: 2012Q2

REPORT INFORMATION
  Report Type: 
  Country: None (occurrence: None)
  Receive Date: 20120518
  Receipt Date: 20120508
  Transmission Date: 20120825
  Serious: Yes (Other)
  Sender: FDA-Public Use
  Company Number: US-ALEXION-A201200870

PATIENT
  Sex: Female
  Weight: 50 kg

DRUGS (11)
  1. BACTRIM [Concomitant]
     Indication: PROPHYLAXIS
     Dosage: 1 TAB TID
     Route: 048
     Dates: start: 20120415
  2. AMLODIPINE BESYLATE [Concomitant]
     Indication: HYPERTENSION
     Dosage: 7.5 MG, QD
     Route: 048
     Dates: start: 20120413, end: 20120101
  3. AMLODIPINE BESYLATE [Concomitant]
     Dosage: 7.5 MG, QD
     Route: 048
     Dates: start: 20120501
  4. PREDNISOLONE [Concomitant]
     Indication: PRODUCT USED FOR UNKNOWN INDICATION
     Dosage: 60 MG, QD
     Route: 048
     Dates: start: 20120414, end: 20120101
  5. CALCIUM CARBONATE [Concomitant]
     Indication: MINERAL SUPPLEMENTATION
     Dosage: 1000 MG, TID
     Route: 048
     Dates: start: 20120415, end: 20120101
  6. CEFDINIR [Concomitant]
     Indication: PROPHYLAXIS
     Dosage: 300 MG QHS
     Route: 048
     Dates: start: 20120411
  7. FOLIC ACID [Concomitant]
     Indication: SUPPLEMENTATION THERAPY
     Dosage: 1 MG, QD
     Route: 048
     Dates: start: 20120403, end: 20120101
  8. M.V.I. [Concomitant]
     Indication: SUPPLEMENTATION THERAPY
     Dosage: 1 TAB, QD
     Route: 048
     Dates: start: 20120415, end: 20120101
  9. PANTOPRAZOLE [Concomitant]
     Indication: DYSPEPSIA
     Dosage: 40 MG, QD
     Route: 048
     Dates: start: 20120403
  10. SOLIRIS [Suspect]
     Indication: HAEMOLYTIC URAEMIC SYNDROME
     Dosage: 900 MG WITH SUPPLEMENTAL 600 MG IV DOSES AFTER PLASMAPHERESIS TREATMENTS
     Route: 042
     Dates: start: 20120412, end: 20120430
  11. METHOTREXATE [Concomitant]
     Indication: B-CELL LYMPHOMA
     Dosage: UNK
     Route: 065

REACTIONS (3)
  - CARDIOMYOPATHY [None]
  - CONVULSION [None]
  - GENERAL PHYSICAL HEALTH DETERIORATION [None]
